FAERS Safety Report 6085872-X (Version None)
Quarter: 2009Q1

REPORT INFORMATION
  Report Type: 
  Country: None (occurrence: None)
  Receive Date: 20090220
  Receipt Date: 20090219
  Transmission Date: 20090719
  Serious: Yes (Other)
  Sender: FDA-Public Use
  Company Number: B0560424A

PATIENT
  Age: 75 Year
  Sex: Male

DRUGS (4)
  1. ROSIGLITAZONE MALEATE [Suspect]
     Indication: TYPE 2 DIABETES MELLITUS
     Route: 065
  2. METFORMIN [Concomitant]
  3. GLIMEPIRIDE [Concomitant]
  4. PIOGLITAZONE [Concomitant]

REACTIONS (1)
  - MYOCARDIAL ISCHAEMIA [None]
